FAERS Safety Report 8010968-2 (Version None)
Quarter: 2011Q4

REPORT INFORMATION
  Report Type: 
  Country: None (occurrence: None)
  Receive Date: 20111228
  Receipt Date: 20111222
  Transmission Date: 20120403
  Serious: Yes (Hospitalization)
  Sender: FDA-Public Use
  Company Number: FR-PFIZER INC-2011311089

PATIENT
  Sex: Male
  Weight: 2.565 kg

DRUGS (6)
  1. LAMICTAL [Suspect]
     Dosage: 100 MG, 2X/DAY
     Route: 064
  2. TRAMADOL HCL [Suspect]
     Dosage: 100 MG, 4X/DAY
     Route: 064
  3. TRAMADOL HCL [Suspect]
     Dosage: 100 MG, 2X/DAY
     Route: 064
  4. URBANYL [Suspect]
     Dosage: 5 MG, 2X/DAY
     Route: 064
  5. LEVOTHYROXINE SODIUM [Suspect]
     Dosage: 125 A?G
     Route: 064
  6. NEURONTIN [Suspect]
     Dosage: 800 MG, 3X/DAY
     Route: 064

REACTIONS (2)
  - PREMATURE BABY [None]
  - MATERNAL EXPOSURE TIMING UNSPECIFIED [None]
